FAERS Safety Report 5678077-5 (Version None)
Quarter: 2008Q1

REPORT INFORMATION
  Report Type: 
  Country: None (occurrence: None)
  Receive Date: 20080320
  Receipt Date: 20080312
  Transmission Date: 20080703
  Serious: Yes (Hospitalization, Other)
  Sender: FDA-Public Use
  Company Number: 18717

PATIENT
  Age: 48 Year
  Sex: Female

DRUGS (4)
  1. METHYLENE BLUE [Suspect]
     Indication: PARATHYROIDECTOMY
     Dosage: 5 MG/KG ONCE IV
     Route: 042
  2. DEXTROSE [Concomitant]
  3. PROPOFOL [Concomitant]
  4. FENTANYL [Concomitant]

REACTIONS (3)
  - CHROMATURIA [None]
  - STATUS EPILEPTICUS [None]
  - VOMITING [None]
